FAERS Safety Report 5091974-7 (Version None)
Quarter: 2006Q3

REPORT INFORMATION
  Report Type: 
  Country: None (occurrence: None)
  Receive Date: 20060825
  Receipt Date: 20060809
  Transmission Date: 20061208
  Serious: Yes (Other)
  Sender: FDA-Public Use
  Company Number: CA200608002356

PATIENT
  Sex: Female

DRUGS (4)
  1. FORTEO [Suspect]
     Indication: OSTEOPOROSIS
     Dosage: 20 UG, DAILY (1/D), UNK
     Dates: start: 20051209
  2. FORTEO [Concomitant]
  3. IVOVANE     /UNK/(ZOPICLONE) [Concomitant]
  4. MAXALT [Concomitant]

REACTIONS (3)
  - FATIGUE [None]
  - LYMPHADENOPATHY [None]
  - MIGRAINE [None]
